FAERS Safety Report 7456913-X (Version None)
Quarter: 2011Q2

REPORT INFORMATION
  Report Type: 
  Country: None (occurrence: None)
  Receive Date: 20110504
  Receipt Date: 20110428
  Transmission Date: 20111010
  Serious: Yes (Other)
  Sender: FDA-Public Use
  Company Number: SG-SP-2011-02549

PATIENT
  Age: 80 Year

DRUGS (1)
  1. TICE BCG [Suspect]
     Indication: BLADDER CANCER
     Route: 043

REACTIONS (1)
  - BLADDER CANCER RECURRENT [None]
